FAERS Safety Report 13255035 (Version 2)
Quarter: 2020Q3

REPORT INFORMATION
  Report Type: Report from Study
  Country: CA (occurrence: CA)
  Receive Date: 20170221
  Receipt Date: 20200904
  Transmission Date: 20201102
  Serious: Yes (Other)
  Sender: FDA-Public Use
  Company Number: PHHY2014CA054984

PATIENT
  Age: 38 Year
  Sex: Female

DRUGS (1)
  1. GILENYA [Suspect]
     Active Substance: FINGOLIMOD HYDROCHLORIDE
     Indication: RELAPSING-REMITTING MULTIPLE SCLEROSIS
     Dosage: 0.5 MG, QD
     Route: 048
     Dates: start: 20140428

REACTIONS (7)
  - Asthenia [Unknown]
  - Product dose omission issue [Unknown]
  - Central nervous system lesion [Unknown]
  - Balance disorder [Unknown]
  - Sensory disturbance [Recovered/Resolved]
  - Fatigue [Unknown]
  - Sphincter of Oddi dysfunction [Unknown]

NARRATIVE: CASE EVENT DATE: 201408
